FAERS Safety Report 9301873 (Version 2)
Quarter: 2013Q2

REPORT INFORMATION
  Report Type: Spontaneous
  Country: US (occurrence: US)
  Receive Date: 20130521
  Receipt Date: 20130530
  Transmission Date: 20140414
  Serious: No
  Sender: FDA-Public Use
  Company Number: US-009507513-1305USA004667

PATIENT
  Age: 53 Year
  Sex: Female
  Weight: 55.78 kg

DRUGS (2)
  1. MIRALAX [Suspect]
     Indication: CONSTIPATION
     Dosage: 34 G, QD
     Route: 048
     Dates: start: 201211
  2. MIRALAX [Suspect]
     Indication: MEDICAL OBSERVATION

REACTIONS (2)
  - Prescribed overdose [Unknown]
  - Incorrect drug administration duration [Unknown]
